FAERS Safety Report 8423404-9 (Version None)
Quarter: 2012Q2

REPORT INFORMATION
  Report Type: 
  Country: None (occurrence: None)
  Receive Date: 20120608
  Receipt Date: 20120531
  Transmission Date: 20120825
  Serious: Yes (Hospitalization)
  Sender: FDA-Public Use
  Company Number: CA-JNJFOC-20111210500

PATIENT
  Sex: Male
  Weight: 100.5 kg

DRUGS (5)
  1. CRESTOR [Concomitant]
  2. REMICADE [Suspect]
     Indication: CROHN'S DISEASE
     Route: 042
     Dates: start: 20100101
  3. PROPRANOLOL [Concomitant]
  4. VITAMIN D [Concomitant]
  5. IMURAN [Concomitant]

REACTIONS (2)
  - CATARACT [None]
  - RETINAL DETACHMENT [None]
